FAERS Safety Report 14192016 (Version 2)
Quarter: 2018Q1

REPORT INFORMATION
  Report Type: Spontaneous
  Country: DE (occurrence: DE)
  Receive Date: 20171115
  Receipt Date: 20180227
  Transmission Date: 20180508
  Serious: Yes (Other)
  Sender: FDA-Public Use
  Company Number: DE-SA-2017SA216684

PATIENT
  Sex: Male
  Weight: 55 kg

DRUGS (3)
  1. AUBAGIO [Suspect]
     Active Substance: TERIFLUNOMIDE
     Indication: MULTIPLE SCLEROSIS
     Route: 048
     Dates: start: 20161101, end: 20171009
  2. REBIF [Concomitant]
     Active Substance: INTERFERON BETA-1A
     Route: 065
  3. TECFIDERA [Concomitant]
     Active Substance: DIMETHYL FUMARATE
     Route: 065

REACTIONS (1)
  - Creutzfeldt-Jakob disease [Unknown]
